FAERS Safety Report 23786827 (Version 2)
Quarter: 2024Q2

REPORT INFORMATION
  Report Type: Spontaneous
  Country: US (occurrence: US)
  Receive Date: 20240426
  Receipt Date: 20240507
  Transmission Date: 20240716
  Serious: No
  Sender: FDA-Public Use
  Company Number: US-AMGEN-USASP2024080236

PATIENT
  Age: 65 Year
  Sex: Male
  Weight: 164.8 kg

DRUGS (7)
  1. NEULASTA [Suspect]
     Active Substance: PEGFILGRASTIM
     Indication: Full blood count decreased
     Dosage: UNK
     Route: 065
     Dates: start: 20231226
  2. NEULASTA [Suspect]
     Active Substance: PEGFILGRASTIM
     Dosage: UNK
     Route: 065
  3. RITUXIMAB [Concomitant]
     Active Substance: RITUXIMAB
     Dosage: UNK UNK, Q3WK
  4. CYCLOPHOSPHAMIDE [Concomitant]
     Active Substance: CYCLOPHOSPHAMIDE
     Dosage: UNK, Q3WK
  5. DOXORUBICIN [Concomitant]
     Active Substance: DOXORUBICIN
     Dosage: UNK UNK, Q3WK
  6. VINCRISTINE [Concomitant]
     Active Substance: VINCRISTINE
     Dosage: UNK UNK, Q3WK
  7. PREDNISONE [Concomitant]
     Active Substance: PREDNISONE
     Dosage: UNK UNK, Q3WK

REACTIONS (1)
  - Device adhesion issue [Unknown]

NARRATIVE: CASE EVENT DATE: 20240416
